FAERS Safety Report 19276139 (Version 3)
Quarter: 2021Q2

REPORT INFORMATION
  Report Type: Spontaneous
  Country: PL (occurrence: PL)
  Receive Date: 20210520
  Receipt Date: 20210622
  Transmission Date: 20210717
  Serious: Yes (Life-Threatening, Hospitalization)
  Sender: FDA-Public Use
  Company Number: PL-ASTRAZENECA-2021A434454

PATIENT
  Sex: Male
  Weight: 78 kg

DRUGS (42)
  1. DEXAVEN [Suspect]
     Active Substance: DEXAMETHASONE
     Indication: COVID-19
     Dosage: UNKNOWN
     Route: 065
  2. BIOTRAKSON [Suspect]
     Active Substance: CEFTRIAXONE SODIUM
     Indication: COVID-19
     Dosage: UNKNOWN
     Route: 065
  3. FLEGAMINE [Suspect]
     Active Substance: BROMHEXINE HYDROCHLORIDE
     Indication: COVID-19
     Dosage: UNKNOWN
     Route: 065
  4. TOCILIZUMAB. [Suspect]
     Active Substance: TOCILIZUMAB
     Indication: COVID-19
     Dosage: UNKNOWN
     Route: 065
  5. TOCILIZUMAB. [Suspect]
     Active Substance: TOCILIZUMAB
     Indication: COVID-19
     Dosage: UNKNOWN
     Route: 065
     Dates: start: 20210421, end: 20210514
  6. NOLPAZA [Concomitant]
     Active Substance: PANTOPRAZOLE SODIUM
     Route: 065
     Dates: start: 2011
  7. VITAMIN C [Concomitant]
     Active Substance: ASCORBIC ACID
     Route: 065
     Dates: start: 2005
  8. PULMICORT TURBUHALER [Suspect]
     Active Substance: BUDESONIDE
     Indication: COVID-19
     Dosage: UNKNOWN
     Route: 055
  9. CLEXANE [Suspect]
     Active Substance: ENOXAPARIN SODIUM
     Indication: COVID-19
     Dosage: UNKNOWN
     Route: 058
     Dates: start: 20210421, end: 20210514
  10. DEXAVEN [Suspect]
     Active Substance: DEXAMETHASONE
     Indication: COVID-19
     Dosage: UNKNOWN
     Route: 065
  11. NACL [Suspect]
     Active Substance: SODIUM CHLORIDE
     Indication: COVID-19
     Dosage: UNKNOWN
     Route: 065
  12. NACL [Suspect]
     Active Substance: SODIUM CHLORIDE
     Indication: COVID-19
     Dosage: UNKNOWN
     Route: 065
  13. OXYGEN. [Suspect]
     Active Substance: OXYGEN
     Indication: COVID-19
     Dosage: UNKNOWN
     Route: 065
  14. METHOTREXATE. [Concomitant]
     Active Substance: METHOTREXATE
     Route: 065
     Dates: start: 2011, end: 20210506
  15. PULMICORT TURBUHALER [Suspect]
     Active Substance: BUDESONIDE
     Indication: COVID-19
     Dosage: UNKNOWN
     Route: 055
     Dates: start: 20210421, end: 20210514
  16. TOCILIZUMAB. [Suspect]
     Active Substance: TOCILIZUMAB
     Indication: COVID-19
     Dosage: UNKNOWN
     Route: 065
     Dates: start: 20210421, end: 20210514
  17. LACIDOFIL [Suspect]
     Active Substance: PROBIOTICS NOS
     Indication: COVID-19
     Dosage: UNKNOWN
     Route: 048
     Dates: start: 20210421, end: 20210514
  18. ACIDUM FOLICUM [Concomitant]
     Active Substance: FOLIC ACID
     Route: 065
     Dates: start: 2011
  19. MAGNE B6 FORTE [Concomitant]
     Active Substance: MAGNESIUM CITRATE\PYRIDOXINE
     Route: 065
     Dates: start: 2016
  20. PULMICORT TURBUHALER [Suspect]
     Active Substance: BUDESONIDE
     Indication: COVID-19
     Dosage: UNKNOWN
     Route: 055
  21. LACIDOFIL [Suspect]
     Active Substance: PROBIOTICS NOS
     Indication: COVID-19
     Dosage: UNKNOWN
     Route: 065
  22. LACIDOFIL [Suspect]
     Active Substance: PROBIOTICS NOS
     Indication: COVID-19
     Dosage: UNKNOWN
     Route: 048
     Dates: start: 20210421, end: 20210514
  23. OXYGEN. [Suspect]
     Active Substance: OXYGEN
     Indication: COVID-19
     Dosage: UNKNOWN
     Route: 065
  24. FEBROFEN [Concomitant]
     Active Substance: KETOPROFEN
     Route: 065
     Dates: start: 2010
  25. ATROX [Concomitant]
     Active Substance: ATORVASTATIN CALCIUM
     Route: 065
     Dates: start: 2015
  26. SLOW MAG [Concomitant]
     Active Substance: MAGNESIUM CHLORIDE
     Route: 065
     Dates: start: 2015
  27. FILGOTINIB [Suspect]
     Active Substance: FILGOTINIB
     Indication: RHEUMATOID ARTHRITIS
     Route: 048
     Dates: start: 20180619, end: 20210421
  28. CLEXANE [Suspect]
     Active Substance: ENOXAPARIN SODIUM
     Indication: COVID-19
     Dosage: UNKNOWN
     Route: 065
  29. OXYGEN. [Suspect]
     Active Substance: OXYGEN
     Indication: COVID-19
     Dosage: UNKNOWN
     Route: 055
     Dates: start: 20210421, end: 20210514
  30. ELECTROLYTE SOLUTIONS [Concomitant]
     Active Substance: UNSPECIFIED INGREDIENT
     Route: 065
     Dates: start: 20210421, end: 20210514
  31. TOCILIZUMAB. [Suspect]
     Active Substance: TOCILIZUMAB
     Indication: COVID-19
     Dosage: UNKNOWN
     Route: 065
  32. MULTI?ELECTROLYTE FLUID [Suspect]
     Active Substance: ELECTROLYTES NOS
     Dosage: UNKNOWN
     Route: 065
  33. VITAMIN K2 [Concomitant]
     Active Substance: MENAQUINONE 6
     Route: 065
     Dates: start: 201703
  34. INNO.N SODIUM CHLORIDE [Concomitant]
     Route: 065
     Dates: start: 20210421, end: 20210514
  35. PULMICORT TURBUHALER [Suspect]
     Active Substance: BUDESONIDE
     Indication: COVID-19
     Dosage: UNKNOWN
     Route: 055
     Dates: start: 20210421, end: 20210514
  36. DEXAVEN [Suspect]
     Active Substance: DEXAMETHASONE
     Indication: COVID-19
     Dosage: UNKNOWN
     Route: 065
  37. BIOTRAKSON [Suspect]
     Active Substance: CEFTRIAXONE SODIUM
     Indication: COVID-19
     Dosage: UNKNOWN
     Route: 065
  38. LACIDOFIL [Suspect]
     Active Substance: PROBIOTICS NOS
     Indication: COVID-19
     Dosage: UNKNOWN
     Route: 065
  39. DEXAVEN [Suspect]
     Active Substance: DEXAMETHASONE
     Indication: COVID-19
     Dosage: UNKNOWN
     Route: 065
  40. FLEGAMINE [Suspect]
     Active Substance: BROMHEXINE HYDROCHLORIDE
     Indication: COVID-19
     Dosage: UNKNOWN
     Route: 065
  41. OXYGEN. [Suspect]
     Active Substance: OXYGEN
     Indication: COVID-19
     Dosage: UNKNOWN
     Route: 055
     Dates: start: 20210421, end: 20210514
  42. CO BESPRES [Concomitant]
     Route: 065
     Dates: start: 20170628

REACTIONS (5)
  - Chronic respiratory failure [Not Recovered/Not Resolved]
  - Pulmonary embolism [Not Recovered/Not Resolved]
  - Interstitial lung disease [Recovered/Resolved]
  - COVID-19 [Recovered/Resolved]
  - Acute respiratory failure [Recovered/Resolved]

NARRATIVE: CASE EVENT DATE: 20210411
